FAERS Safety Report 24639841 (Version 1)
Quarter: 2024Q4

REPORT INFORMATION
  Report Type: Spontaneous
  Country: US (occurrence: US)
  Receive Date: 20241120
  Receipt Date: 20241120
  Transmission Date: 20250115
  Serious: No
  Sender: ALVOGEN
  Company Number: US-ALVOGEN-2024093042

PATIENT
  Sex: Male

DRUGS (1)
  1. TERIPARATIDE [Suspect]
     Active Substance: TERIPARATIDE
     Indication: Osteoporosis
     Dosage: 20MCG (STRENGTH: 250MCG/ML)
     Route: 058
     Dates: start: 202311

REACTIONS (3)
  - Balance disorder [Unknown]
  - Road traffic accident [Unknown]
  - Palpitations [Unknown]
